FAERS Safety Report 19439327 (Version 1)
Quarter: 2021Q2

REPORT INFORMATION
  Report Type: Spontaneous
  Country: JP (occurrence: JP)
  Receive Date: 20210618
  Receipt Date: 20210618
  Transmission Date: 20210717
  Serious: Yes (Death)
  Sender: FDA-Public Use
  Company Number: JP-PFIZER INC-2021685142

PATIENT

DRUGS (1)
  1. METHOTREXATE 1000MG [Suspect]
     Active Substance: METHOTREXATE
     Route: 042

REACTIONS (1)
  - Acute kidney injury [Fatal]
